FAERS Safety Report 15849366 (Version 1)
Quarter: 2019Q1

REPORT INFORMATION
  Report Type: Report from Study
  Country: US (occurrence: US)
  Receive Date: 20190121
  Receipt Date: 20190121
  Transmission Date: 20190417
  Serious: Yes (Hospitalization)
  Sender: FDA-Public Use
  Company Number: US-SA-2019SA013790

PATIENT
  Age: 43 Year
  Sex: Female

DRUGS (1)
  1. INSULIN GLARGINE [Suspect]
     Active Substance: INSULIN GLARGINE
     Indication: TYPE 1 DIABETES MELLITUS
     Dosage: 24 U, HS (AT NIGHT)
     Route: 058
     Dates: start: 20181214

REACTIONS (2)
  - Malaise [Not Recovered/Not Resolved]
  - Hospitalisation [Unknown]
